FAERS Safety Report 5812480-5 (Version None)
Quarter: 2008Q3

REPORT INFORMATION
  Report Type: 
  Country: None (occurrence: None)
  Receive Date: 20080715
  Receipt Date: 20080715
  Transmission Date: 20090109
  Serious: Yes (Hospitalization)
  Sender: FDA-Public Use
  Company Number: None

PATIENT
  Age: 61 Year
  Sex: Female
  Weight: 58.8 kg

DRUGS (1)
  1. DOXORUBICIN HCL [Suspect]
     Dosage: 78 MG IV
     Route: 042
     Dates: start: 20080121

REACTIONS (1)
  - COLITIS [None]
